FAERS Safety Report 9771847 (Version 1)
Quarter: 2013Q4

REPORT INFORMATION
  Report Type: Report from Study
  Country: NL (occurrence: NL)
  Receive Date: 20131219
  Receipt Date: 20131219
  Transmission Date: 20140711
  Serious: Yes (Hospitalization)
  Sender: FDA-Public Use
  Company Number: PHHY2013NL147372

PATIENT
  Age: 65 Year
  Sex: Male
  Weight: 77 kg

DRUGS (2)
  1. SANDOSTATIN LAR [Suspect]
     Indication: ACROMEGALY
     Dosage: 10 MG, ONCE PER 6 WEEKS
     Dates: start: 20101015
  2. EUTHYROX [Concomitant]
     Dosage: UNK

REACTIONS (3)
  - Diverticulitis [Recovered/Resolved with Sequelae]
  - Blood potassium decreased [Unknown]
  - Decreased appetite [Recovering/Resolving]
